FAERS Safety Report 4749691-6 (Version None)
Quarter: 2005Q3

REPORT INFORMATION
  Report Type: 
  Country: None (occurrence: None)
  Receive Date: 20050822
  Receipt Date: 20050809
  Transmission Date: 20060218
  Serious: Yes (Hospitalization)
  Sender: FDA-Public Use
  Company Number: IE-ROCHE-413697

PATIENT
  Age: 19 Year
  Sex: Male

DRUGS (1)
  1. ROACCUTANE [Suspect]
     Indication: ACNE
     Route: 065
     Dates: start: 20050615, end: 20050803

REACTIONS (5)
  - CONFUSIONAL STATE [None]
  - HALLUCINATION [None]
  - PYREXIA [None]
  - VIRAL INFECTION [None]
  - VOMITING [None]
